FAERS Safety Report 6312417 (Version 2)
Quarter: 2017Q3

REPORT INFORMATION
  Report Type: Spontaneous
  Country: TR (occurrence: TR)
  Receive Date: 20070515
  Receipt Date: 20170823
  Transmission Date: 20171128
  Serious: Yes (Other)
  Sender: FDA-Public Use
  Company Number: TR-JNJFOC-20070502806

PATIENT
  Age: 6 Year
  Sex: Female

DRUGS (9)
  1. RISPERIDONE. [Suspect]
     Active Substance: RISPERIDONE
     Indication: ATTENTION DEFICIT/HYPERACTIVITY DISORDER
     Route: 065
  2. RISPERIDONE. [Suspect]
     Active Substance: RISPERIDONE
     Indication: NEGATIVISM
     Route: 065
  3. METHYLPHENIDATE. [Interacting]
     Active Substance: METHYLPHENIDATE
     Indication: ATTENTION DEFICIT/HYPERACTIVITY DISORDER
     Route: 048
  4. METHYLPHENIDATE. [Interacting]
     Active Substance: METHYLPHENIDATE
     Indication: MENTAL IMPAIRMENT
     Route: 048
  5. METHYLPHENIDATE. [Interacting]
     Active Substance: METHYLPHENIDATE
     Indication: ATTENTION DEFICIT/HYPERACTIVITY DISORDER
     Route: 048
  6. RISPERIDONE. [Suspect]
     Active Substance: RISPERIDONE
     Indication: MENTAL IMPAIRMENT
     Route: 065
  7. METHYLPHENIDATE. [Interacting]
     Active Substance: METHYLPHENIDATE
     Indication: NEGATIVISM
     Route: 048
  8. METHYLPHENIDATE. [Interacting]
     Active Substance: METHYLPHENIDATE
     Indication: NEGATIVISM
     Route: 048
  9. METHYLPHENIDATE. [Interacting]
     Active Substance: METHYLPHENIDATE
     Indication: MENTAL IMPAIRMENT
     Route: 048

REACTIONS (2)
  - Drug interaction [Unknown]
  - Mania [Recovering/Resolving]
